FAERS Safety Report 10265139 (Version 1)
Quarter: 2014Q2

REPORT INFORMATION
  Report Type: Spontaneous
  Country: FR (occurrence: FR)
  Receive Date: 20140627
  Receipt Date: 20140627
  Transmission Date: 20141212
  Serious: Yes (Hospitalization, Other)
  Sender: FDA-Public Use
  Company Number: FR-PFIZER INC-2014176142

PATIENT
  Age: 82 Year
  Sex: Male

DRUGS (5)
  1. CORDARONE [Suspect]
     Indication: ATRIAL TACHYCARDIA
     Dosage: 200 MG, UNK
     Route: 048
     Dates: start: 201312, end: 201402
  2. TENORMIN [Suspect]
     Indication: HYPERTENSION
     Dosage: 50 MG, UNK
     Route: 048
     Dates: start: 2008, end: 201312
  3. TENORMIN [Suspect]
     Dosage: 1.5 DF, DAILY
     Route: 048
     Dates: start: 201312, end: 201402
  4. TEMESTA [Suspect]
     Dosage: 1 MG, UNK
     Route: 048
     Dates: start: 20131217
  5. INNOHEP [Suspect]
     Indication: ATRIAL TACHYCARDIA
     Dosage: 4500 IU, UNK
     Route: 058
     Dates: start: 201401

REACTIONS (6)
  - Bradycardia [Recovered/Resolved]
  - Loss of consciousness [Recovered/Resolved]
  - Malaise [Recovered/Resolved]
  - Renal failure [Unknown]
  - Diarrhoea [Recovered/Resolved]
  - Dehydration [Unknown]
